FAERS Safety Report 5266470-4 (Version None)
Quarter: 2007Q1

REPORT INFORMATION
  Report Type: 
  Country: None (occurrence: None)
  Receive Date: 20070315
  Receipt Date: 20070305
  Transmission Date: 20070707
  Serious: Yes (Other)
  Sender: FDA-Public Use
  Company Number: US-ROCHE-484475

PATIENT
  Age: 40 Year
  Sex: Female

DRUGS (2)
  1. PEGASYS [Suspect]
     Indication: HEPATITIS C VIRUS
     Route: 065
     Dates: start: 20070207
  2. RIBAVIRIN [Suspect]
     Indication: HEPATITIS C VIRUS
     Route: 065
     Dates: start: 20070207

REACTIONS (7)
  - ABNORMAL DREAMS [None]
  - BREAST DISCHARGE [None]
  - DYSGEUSIA [None]
  - FOOD CRAVING [None]
  - HEADACHE [None]
  - INSOMNIA [None]
  - PAIN [None]
